FAERS Safety Report 18977849 (Version 1)
Quarter: 2021Q1

REPORT INFORMATION
  Report Type: Report from Study
  Country: CO (occurrence: CO)
  Receive Date: 20210306
  Receipt Date: 20210306
  Transmission Date: 20210420
  Serious: Yes (Hospitalization, Other)
  Sender: FDA-Public Use
  Company Number: NVSC2021CO048405

PATIENT
  Sex: Female
  Weight: 37 kg

DRUGS (2)
  1. JADENU [Suspect]
     Active Substance: DEFERASIROX
     Indication: IRON OVERLOAD
     Dosage: 180 MG, Q24H
     Route: 048
  2. JADENU [Suspect]
     Active Substance: DEFERASIROX
     Indication: APLASTIC ANAEMIA

REACTIONS (3)
  - Pneumonia [Recovered/Resolved]
  - Pleural effusion [Recovering/Resolving]
  - Sickle cell anaemia [Recovered/Resolved]
